FAERS Safety Report 7471917-9 (Version None)
Quarter: 2011Q2

REPORT INFORMATION
  Report Type: 
  Country: None (occurrence: None)
  Receive Date: 20110511
  Receipt Date: 20100714
  Transmission Date: 20111010
  Serious: No
  Sender: FDA-Public Use
  Company Number: A0870442A

PATIENT
  Sex: Female

DRUGS (8)
  1. IBUPROFEN [Concomitant]
  2. MULTI-VITAMIN [Concomitant]
  3. ABILIFY [Concomitant]
  4. TYKERB [Suspect]
     Indication: BREAST CANCER
     Dosage: 6TAB PER DAY
     Route: 048
     Dates: start: 20100625
  5. KLONOPIN [Concomitant]
  6. CYMBALTA [Concomitant]
  7. FEMARA [Concomitant]
  8. MORPHINE [Concomitant]

REACTIONS (2)
  - WEIGHT DECREASED [None]
  - DIARRHOEA [None]
